FAERS Safety Report 9578429 (Version 1)
Quarter: 2013Q4

REPORT INFORMATION
  Report Type: Spontaneous
  Country: US (occurrence: US)
  Receive Date: 20131001
  Receipt Date: 20131001
  Transmission Date: 20140711
  Serious: No
  Sender: FDA-Public Use
  Company Number: US-AMGEN-USASP2013013093

PATIENT
  Sex: Female
  Weight: 79.37 kg

DRUGS (11)
  1. ENBREL [Suspect]
     Indication: PSORIATIC ARTHROPATHY
     Dosage: 50 MG/ML, QWK
     Route: 058
  2. SYMBICORT [Concomitant]
     Dosage: 160-4.5
  3. ACTIVELLA [Concomitant]
     Dosage: 0.5-0.1
  4. DIOVAN [Concomitant]
     Dosage: 320 MG, UNK
  5. ZYRTEC [Concomitant]
     Dosage: 10 MG, UNK
  6. OMEPRAZOLE [Concomitant]
     Dosage: 20 MG, UNK
  7. BUDEPRION [Concomitant]
     Dosage: 150 MG, UNK
  8. METHOTREXATE [Concomitant]
     Dosage: 2.5 MG, UNK
  9. FOLIC ACID [Concomitant]
     Dosage: 1 MG, UNK
  10. CALCIUM 600 [Concomitant]
     Dosage: 600 UNK, UNK
  11. VITAMIN D3 [Concomitant]
     Dosage: 2000 UNIT, UNK

REACTIONS (1)
  - Drug ineffective [Unknown]
